FAERS Safety Report 4366673-7 (Version None)
Quarter: 2004Q2

REPORT INFORMATION
  Report Type: 
  Country: None (occurrence: None)
  Receive Date: 20040527
  Receipt Date: 20040331
  Transmission Date: 20050107
  Serious: No
  Sender: FDA-Public Use
  Company Number: US-GLAXOSMITHKLINE-A0505405A

PATIENT
  Age: 69 Year
  Sex: Male

DRUGS (8)
  1. AVODART [Suspect]
     Indication: BENIGN PROSTATIC HYPERPLASIA
     Dosage: .5MG PER DAY
     Route: 048
     Dates: start: 20040213
  2. LIPITOR [Concomitant]
  3. PLAVIX [Concomitant]
  4. MONOPRIL [Concomitant]
  5. FOLIC ACID [Concomitant]
  6. ZOLOFT [Concomitant]
  7. PREVACID [Concomitant]
  8. MONOPRIL [Concomitant]

REACTIONS (2)
  - DYSPNOEA [None]
  - HEART RATE INCREASED [None]
